FAERS Safety Report 10527963 (Version 1)
Quarter: 2014Q4

REPORT INFORMATION
  Report Type: Other
  Country: NO (occurrence: NO)
  Receive Date: 20141020
  Receipt Date: 20141020
  Transmission Date: 20150528
  Serious: Yes (Life-Threatening, Hospitalization)
  Sender: FDA-Public Use
  Company Number: NO-MYLANLABS-2014M1006970

PATIENT

DRUGS (10)
  1. PREDNISOLONE. [Concomitant]
     Active Substance: PREDNISOLONE
  2. AMARYL [Concomitant]
     Active Substance: GLIMEPIRIDE
  3. ISOPTIN [Suspect]
     Active Substance: VERAPAMIL HYDROCHLORIDE
     Indication: HYPERTENSION
     Dosage: 240 MG, BID
     Route: 048
  4. TOLVON [Concomitant]
     Active Substance: MIANSERIN
  5. ALBYL-E [Concomitant]
     Active Substance: ASPIRIN\MAGNESIUM OXIDE
  6. METFORMIN [Suspect]
     Active Substance: METFORMIN HYDROCHLORIDE
     Indication: DIABETES MELLITUS
     Dosage: 1G + 0,5G + 1G
     Route: 048
  7. FURIX [Concomitant]
     Active Substance: FUROSEMIDE
     Dosage: UNK
  8. VIMOVO [Concomitant]
     Active Substance: ESOMEPRAZOLE MAGNESIUM\NAPROXEN
  9. LETROZOLE. [Concomitant]
     Active Substance: LETROZOLE
     Indication: BREAST CANCER
  10. BETMIGA [Concomitant]
     Active Substance: MIRABEGRON
     Dosage: UNK

REACTIONS (10)
  - Lactic acidosis [Recovered/Resolved]
  - Flushing [Unknown]
  - Somnolence [Unknown]
  - Acute kidney injury [Recovered/Resolved]
  - Hypotension [Unknown]
  - Hyperglycaemia [Unknown]
  - Atrioventricular block complete [Recovered/Resolved]
  - Sinus arrest [Unknown]
  - Hypothermia [Unknown]
  - Tachycardia [Unknown]

NARRATIVE: CASE EVENT DATE: 20140829
